FAERS Safety Report 4552003-4 (Version None)
Quarter: 2005Q1

REPORT INFORMATION
  Report Type: 
  Country: None (occurrence: None)
  Receive Date: 20050112
  Receipt Date: 20041230
  Transmission Date: 20050727
  Serious: Yes (Other)
  Sender: FDA-Public Use
  Company Number: HQWYE292130DEC04

PATIENT
  Age: 28 Year
  Sex: Male

DRUGS (1)
  1. AMIODACORE (AMIODARONE) [Suspect]
     Indication: TACHYARRHYTHMIA

REACTIONS (3)
  - SYNCOPE [None]
  - TACHYARRHYTHMIA [None]
  - VENTRICULAR FIBRILLATION [None]
